FAERS Safety Report 9466229 (Version 1)
Quarter: 2013Q3

REPORT INFORMATION
  Report Type: Spontaneous
  Country: US (occurrence: US)
  Receive Date: 20130820
  Receipt Date: 20130820
  Transmission Date: 20140515
  Serious: No
  Sender: FDA-Public Use
  Company Number: US-PFIZER INC-2013237818

PATIENT
  Age: 71 Year
  Sex: Female

DRUGS (1)
  1. SUTENT [Suspect]
     Indication: RENAL CANCER
     Dosage: 50 MG, UNK
     Dates: start: 20130628

REACTIONS (7)
  - Skin lesion [Unknown]
  - Fatigue [Unknown]
  - Speech disorder [Unknown]
  - Headache [Unknown]
  - Contusion [Unknown]
  - Gait disturbance [Unknown]
  - Limb discomfort [Unknown]
